FAERS Safety Report 11246597 (Version 1)
Quarter: 2015Q3

REPORT INFORMATION
  Report Type: Spontaneous
  Country: US (occurrence: None)
  Receive Date: 20150706
  Receipt Date: 20150706
  Transmission Date: 20151125
  Serious: Yes (Hospitalization)
  Sender: FDA-Public Use
  Company Number: IPC201506-000423

PATIENT
  Age: 57 Year
  Sex: Male

DRUGS (4)
  1. LITHIUM CARBONATE (LITHIUM CARBONATE) [Suspect]
     Active Substance: LITHIUM CARBONATE
     Dosage: 600 MG IN  MORNING AND 300 MG IN EVENING
  2. OLANZAPINE. [Concomitant]
     Active Substance: OLANZAPINE
  3. HYDROCHLOROTHIAZIDE (HYDROCHLOROTHIAZIDE) [Suspect]
     Active Substance: HYDROCHLOROTHIAZIDE
     Indication: HYPERTENSION
  4. TACROLIMUS. [Suspect]
     Active Substance: TACROLIMUS

REACTIONS (12)
  - Disturbance in attention [None]
  - Feeling abnormal [None]
  - Somnolence [None]
  - Feeling guilty [None]
  - Drug interaction [None]
  - Decreased appetite [None]
  - Dementia with Lewy bodies [None]
  - Balance disorder [None]
  - Toxicity to various agents [None]
  - Social avoidant behaviour [None]
  - Depression [None]
  - Lethargy [None]
